FAERS Safety Report 4601493-7 (Version None)
Quarter: 2005Q1

REPORT INFORMATION
  Report Type: 
  Country: None (occurrence: None)
  Receive Date: 20050308
  Receipt Date: 20050224
  Transmission Date: 20050727
  Serious: Yes (Other)
  Sender: FDA-Public Use
  Company Number: US-ROCHE-396881

PATIENT
  Age: 56 Year
  Sex: Female
  Weight: 108.9 kg

DRUGS (4)
  1. PEGASYS [Suspect]
     Indication: HEPATITIS C
     Dosage: STRENGTH REPORTED AS 180 MCG/0.5 ML.
     Route: 058
     Dates: start: 20040513
  2. COPEGUS [Suspect]
     Indication: HEPATITIS C
     Route: 048
     Dates: start: 20040513
  3. TOPROL-XL [Concomitant]
     Indication: HYPERTENSION
     Route: 048
  4. LASIX [Concomitant]
     Indication: HYPERTENSION
     Route: 048

REACTIONS (5)
  - CARDIAC FAILURE CONGESTIVE [None]
  - INSOMNIA [None]
  - PERICARDIAL EFFUSION [None]
  - PNEUMONIA [None]
  - TREATMENT NONCOMPLIANCE [None]
